FAERS Safety Report 7329010-1 (Version None)
Quarter: 2011Q1

REPORT INFORMATION
  Report Type: 
  Country: None (occurrence: None)
  Receive Date: 20110303
  Receipt Date: 20110218
  Transmission Date: 20110831
  Serious: Yes (Other)
  Sender: FDA-Public Use
  Company Number: PHHY2011SE14702

PATIENT
  Age: 85 Year
  Sex: Female

DRUGS (8)
  1. ENALAPRIL MALEATE [Concomitant]
     Dosage: UNK
     Dates: start: 19980101, end: 20080101
  2. TRAMADOL HCL [Concomitant]
     Dosage: UNK
     Dates: start: 20050301, end: 20061201
  3. ALENDRONIC ACID [Suspect]
     Dosage: 70 MG/WEEK
     Dates: start: 20050601, end: 20090201
  4. CLOPIDOGREL [Concomitant]
  5. LEVODOPA [Concomitant]
  6. ACETYLSALICYLIC ACID [Concomitant]
     Dosage: UNK
     Dates: start: 19970101, end: 20080301
  7. CALCIUM [Concomitant]
  8. SELEGILINE [Concomitant]

REACTIONS (10)
  - ORAL PAIN [None]
  - SPEECH DISORDER [None]
  - EATING DISORDER [None]
  - WEIGHT DECREASED [None]
  - MOUTH ULCERATION [None]
  - ORAL DISORDER [None]
  - MUCOSAL INFLAMMATION [None]
  - AGEUSIA [None]
  - INTENTIONAL DRUG MISUSE [None]
  - ORAL DISCOMFORT [None]
